FAERS Safety Report 6517313-X (Version None)
Quarter: 2009Q4

REPORT INFORMATION
  Report Type: 
  Country: None (occurrence: None)
  Receive Date: 20091218
  Receipt Date: 20091202
  Transmission Date: 20100525
  Serious: No
  Sender: FDA-Public Use
  Company Number: 2009-00779

PATIENT
  Age: 83 Year
  Sex: Male
  Weight: 61.2356 kg

DRUGS (9)
  1. COLD REMEDY GEL SWABS [Suspect]
     Dosage: SPORADIC
  2. METOPROLOL TARTRATE [Concomitant]
  3. FLECAINIDE ACETATE [Concomitant]
  4. KLOR-CON [Concomitant]
  5. FOLIC ACID [Concomitant]
  6. OMEPRAZOLE [Concomitant]
  7. ASPIRIN [Concomitant]
  8. NORWEGIAN COD LIVER OIL TABLETS [Concomitant]
  9. MULTI-VITAMINS [Concomitant]

REACTIONS (1)
  - HYPOGEUSIA [None]
